FAERS Safety Report 5248042-0 (Version None)
Quarter: 2007Q1

REPORT INFORMATION
  Report Type: 
  Country: None (occurrence: None)
  Receive Date: 20070227
  Receipt Date: 20061114
  Transmission Date: 20070707
  Serious: Yes (Hospitalization)
  Sender: FDA-Public Use
  Company Number: US-BRISTOL-MYERS SQUIBB COMPANY-13467485

PATIENT
  Age: 65 Year
  Sex: Male

DRUGS (9)
  1. CETUXIMAB [Suspect]
     Indication: NON-SMALL CELL LUNG CANCER METASTATIC
     Route: 042
     Dates: start: 20060707, end: 20060728
  2. CARBOPLATIN [Suspect]
     Indication: NON-SMALL CELL LUNG CANCER METASTATIC
     Route: 042
     Dates: start: 20060707, end: 20060728
  3. PACLITAXEL [Suspect]
     Indication: NON-SMALL CELL LUNG CANCER METASTATIC
     Route: 042
     Dates: start: 20060707, end: 20060728
  4. ASPIRIN [Concomitant]
     Indication: CORONARY ARTERY DISEASE
     Dates: start: 20000301
  5. ATACAND [Concomitant]
     Dates: start: 20000301
  6. LASIX [Concomitant]
     Dates: start: 20000301, end: 20060720
  7. ATORVASTATIN [Concomitant]
     Indication: BLOOD CHOLESTEROL
     Dates: start: 20000301
  8. VICODIN [Concomitant]
     Indication: BACK PAIN
     Dates: start: 20060526
  9. PROVENTIL [Concomitant]
     Indication: DYSPNOEA
     Dates: start: 20060501

REACTIONS (3)
  - DIARRHOEA [None]
  - HYPOMAGNESAEMIA [None]
  - RENAL FAILURE [None]
